FAERS Safety Report 4683678-7 (Version None)
Quarter: 2005Q2

REPORT INFORMATION
  Report Type: 
  Country: None (occurrence: None)
  Receive Date: 20050602
  Receipt Date: 20050414
  Transmission Date: 20051028
  Serious: Yes (Other)
  Sender: FDA-Public Use
  Company Number: 200510763BWH

PATIENT
  Age: 59 Year
  Sex: Male

DRUGS (17)
  1. LEVITRA [Suspect]
     Indication: ERECTILE DYSFUNCTION
     Dosage: SEE IMAGE
     Route: 048
     Dates: start: 20050401
  2. LEVITRA [Suspect]
     Indication: ERECTILE DYSFUNCTION
     Dosage: SEE IMAGE
     Route: 048
     Dates: start: 20050401
  3. PROVENTIL [Concomitant]
  4. KLONAZEPAM [Concomitant]
  5. ZETIA [Concomitant]
  6. INSPRA [Concomitant]
  7. BUMEX [Concomitant]
  8. FOSAMAX [Concomitant]
  9. TOPROL-XL [Concomitant]
  10. POTASSIUM CHLORIDE [Concomitant]
  11. SINGULAIR [Concomitant]
  12. ZYRTEC [Concomitant]
  13. MAVIK [Concomitant]
  14. LIPITOR [Concomitant]
  15. FLEXERIL [Concomitant]
  16. COUMADIN [Concomitant]
  17. PROTONIX [Concomitant]

REACTIONS (1)
  - SYNCOPE [None]
